FAERS Safety Report 17453135 (Version 2)
Quarter: 2020Q1

REPORT INFORMATION
  Report Type: Report from Study
  Country: US (occurrence: US)
  Receive Date: 20200224
  Receipt Date: 20200303
  Transmission Date: 20200409
  Serious: Yes (Hospitalization, Other)
  Sender: FDA-Public Use
  Company Number: US-GILEAD-2020-0451718

PATIENT
  Age: 75 Year
  Sex: Female
  Weight: 47 kg

DRUGS (61)
  1. MIRTAZAPINE. [Concomitant]
     Active Substance: MIRTAZAPINE
     Dosage: 15,MG,DAILY
     Route: 048
     Dates: start: 2000
  2. PROCHLORPERAZINE. [Concomitant]
     Active Substance: PROCHLORPERAZINE
     Dosage: 10,MG,AS NECESSARY
     Route: 048
     Dates: start: 2000
  3. FAMOTIDINE. [Concomitant]
     Active Substance: FAMOTIDINE
     Dosage: 20,MG,TWICE DAILY
     Route: 048
     Dates: start: 2000, end: 20200218
  4. FAMOTIDINE. [Concomitant]
     Active Substance: FAMOTIDINE
     Dosage: 20,MG,DAILY
     Route: 048
     Dates: start: 20200229
  5. LEVETIRACETAM. [Concomitant]
     Active Substance: LEVETIRACETAM
     Dosage: 750,MG,TWICE DAILY
     Route: 048
     Dates: start: 20200209, end: 20200214
  6. ACYCLOVIR [ACICLOVIR] [Concomitant]
     Active Substance: ACYCLOVIR
     Dosage: 800,MG,TWICE DAILY
     Route: 048
     Dates: start: 20200209, end: 20200215
  7. ACETAMINOPHEN. [Concomitant]
     Active Substance: ACETAMINOPHEN
     Dosage: 650,MG,ONCE
     Route: 048
     Dates: start: 20200210, end: 20200210
  8. FLUDARABINE [Suspect]
     Active Substance: FLUDARABINE PHOSPHATE
     Indication: BONE MARROW CONDITIONING REGIMEN
     Dosage: 30
     Route: 042
     Dates: start: 20200205, end: 20200207
  9. SODIUM CHLORIDE 0.9% [Concomitant]
     Active Substance: SODIUM CHLORIDE
     Dosage: 1000,ML,ONCE
     Route: 042
     Dates: start: 20200205, end: 20200205
  10. SODIUM CHLORIDE 0.9% [Concomitant]
     Active Substance: SODIUM CHLORIDE
     Dosage: 1000,ML,AS NECESSARY
     Route: 042
     Dates: start: 20200221, end: 20200222
  11. LEVETIRACETAM. [Concomitant]
     Active Substance: LEVETIRACETAM
     Dosage: 750,MG,TWICE DAILY
     Route: 048
     Dates: start: 20200209
  12. ACETAMINOPHEN. [Concomitant]
     Active Substance: ACETAMINOPHEN
     Dosage: 650,MG,DAILY
     Route: 048
     Dates: start: 20200212, end: 20200215
  13. CEFEPIME [Concomitant]
     Active Substance: CEFEPIME HYDROCHLORIDE
     Dosage: 1,G,THREE TIMES DAILY
     Route: 042
     Dates: start: 20200215
  14. CYCLOPHOSPHAMIDE. [Suspect]
     Active Substance: CYCLOPHOSPHAMIDE
     Indication: BONE MARROW CONDITIONING REGIMEN
     Dosage: 500
     Route: 042
     Dates: start: 20200205, end: 20200207
  15. SODIUM CHLORIDE 0.9% [Concomitant]
     Active Substance: SODIUM CHLORIDE
     Dosage: 1000,MG/L,AS NECESSARY
     Route: 042
     Dates: start: 20200215, end: 20200216
  16. MIDAZOLAM HYDROCHLORIDE. [Concomitant]
     Active Substance: MIDAZOLAM HYDROCHLORIDE
     Dosage: 0.5,MG,TWICE DAILY
     Route: 042
     Dates: start: 20200205, end: 20200205
  17. MAGNESIUM SULFATE. [Concomitant]
     Active Substance: MAGNESIUM SULFATE
     Dosage: 2,G,DAILY
     Route: 042
     Dates: start: 20200217
  18. NYSTATIN. [Concomitant]
     Active Substance: NYSTATIN
     Dosage: 500000,OTHER,FOUR TIMES DAILY
     Route: 050
     Dates: start: 20200209, end: 20200214
  19. CYCLOSPORINE. [Concomitant]
     Active Substance: CYCLOSPORINE
     Dosage: 1,OTHER,TWICE DAILY
     Route: 031
     Dates: start: 20200211
  20. SODIUM CHLORIDE 0.9% [Concomitant]
     Active Substance: SODIUM CHLORIDE
     Dosage: 500,ML,ONCE
     Route: 042
     Dates: start: 20200213, end: 20200213
  21. SODIUM CHLORIDE 0.9% [Concomitant]
     Active Substance: SODIUM CHLORIDE
     Dosage: 250,ML,AS NECESSARY
     Route: 042
     Dates: start: 20200217, end: 20200220
  22. FENTANYL. [Concomitant]
     Active Substance: FENTANYL
     Dosage: 25,UG,TWICE DAILY
     Route: 042
     Dates: start: 20200205, end: 20200205
  23. TRAMADOL. [Concomitant]
     Active Substance: TRAMADOL
     Dosage: 25,MG,ONCE
     Route: 048
     Dates: start: 20200205, end: 20200205
  24. MAGNESIUM SULFATE. [Concomitant]
     Active Substance: MAGNESIUM SULFATE
     Dosage: 4,G,ONCE
     Route: 042
     Dates: start: 20200215, end: 20200215
  25. CIPROFLOXACIN. [Concomitant]
     Active Substance: CIPROFLOXACIN
     Dosage: 500,MG,TWICE DAILY
     Route: 048
     Dates: start: 20200210, end: 20200214
  26. CALCIUM CARBONATE. [Concomitant]
     Active Substance: CALCIUM CARBONATE
     Dosage: 500,MG,TWICE DAILY
     Route: 048
     Dates: start: 20200212, end: 20200214
  27. SODIUM CHLORIDE 0.9% [Concomitant]
     Active Substance: SODIUM CHLORIDE
     Dosage: 1000,ML,ONCE
     Route: 042
     Dates: start: 20200210, end: 20200210
  28. SODIUM CHLORIDE 0.9% [Concomitant]
     Active Substance: SODIUM CHLORIDE
     Dosage: 1000,ML,AS NECESSARY
     Route: 042
     Dates: start: 20200225, end: 20200226
  29. MAGNESIUM SULFATE. [Concomitant]
     Active Substance: MAGNESIUM SULFATE
     Dosage: 2,G,DAILY
     Route: 042
     Dates: start: 20200210, end: 20200214
  30. FUROSEMIDE. [Concomitant]
     Active Substance: FUROSEMIDE
     Dosage: 10,MG,ONCE
     Route: 042
     Dates: start: 20200207, end: 20200207
  31. NYSTATIN. [Concomitant]
     Active Substance: NYSTATIN
     Dosage: 500000,UG,AS NECESSARY
     Route: 050
     Dates: start: 20200209
  32. NYSTATIN. [Concomitant]
     Active Substance: NYSTATIN
     Dosage: 500000,OTHER,FOUR TIMES DAILY
     Route: 050
     Dates: start: 20200219, end: 20200219
  33. NYSTATIN. [Concomitant]
     Active Substance: NYSTATIN
     Dosage: 500000,OTHER,ONCE
     Route: 050
     Dates: start: 20200220, end: 20200220
  34. FLUCONAZOLE. [Concomitant]
     Active Substance: FLUCONAZOLE
     Dosage: 200,MG,DAILY
     Route: 048
     Dates: start: 20200209
  35. ALLOPURINOL. [Concomitant]
     Active Substance: ALLOPURINOL
     Dosage: 300,MG,DAILY
     Route: 048
     Dates: start: 20200210, end: 20200216
  36. LORATADINE. [Concomitant]
     Active Substance: LORATADINE
     Dosage: 10,MG,DAILY
     Route: 048
     Dates: start: 2000
  37. FLUTICASONE. [Concomitant]
     Active Substance: FLUTICASONE
     Dosage: 50,UG,DAILY
     Route: 045
     Dates: start: 2000
  38. METOPROLOL. [Concomitant]
     Active Substance: METOPROLOL
     Dosage: 12.5,MG,TWICE DAILY
     Route: 048
     Dates: start: 2000, end: 20200220
  39. MAGNESIUM AMINO ACID CHELATE [Concomitant]
     Active Substance: MAGNESIUM
     Dosage: 266,MG,ONCE
     Route: 048
     Dates: start: 20200204, end: 20200204
  40. SODIUM CHLORIDE 0.9% [Concomitant]
     Active Substance: SODIUM CHLORIDE
     Dosage: 1000,ML,AS NECESSARY
     Route: 042
     Dates: start: 20200229
  41. CLINDAMYCIN. [Concomitant]
     Active Substance: CLINDAMYCIN
     Dosage: 900,MG,ONCE
     Route: 042
     Dates: start: 20200205, end: 20200205
  42. PALONOSETRON. [Concomitant]
     Active Substance: PALONOSETRON HYDROCHLORIDE
     Dosage: 0.25,MG,ONCE
     Route: 042
     Dates: start: 20200205, end: 20200205
  43. LEVETIRACETAM. [Concomitant]
     Active Substance: LEVETIRACETAM
     Dosage: 1000,MG,AS NECESSARY
     Route: 042
     Dates: start: 20200217, end: 20200217
  44. LEVETIRACETAM. [Concomitant]
     Active Substance: LEVETIRACETAM
     Dosage: 1500,MG,AS NECESSARY
     Route: 042
     Dates: start: 20200218, end: 20200219
  45. LEVETIRACETAM. [Concomitant]
     Active Substance: LEVETIRACETAM
     Dosage: 1500,MG,TWICE DAILY
     Route: 048
     Dates: start: 20200220
  46. NYSTATIN. [Concomitant]
     Active Substance: NYSTATIN
     Dosage: 500000,OTHER,TWICE DAILY
     Route: 050
     Dates: start: 20200216, end: 20200216
  47. ACETAMINOPHEN. [Concomitant]
     Active Substance: ACETAMINOPHEN
     Dosage: 1000,MG,AS NECESSARY
     Route: 048
     Dates: start: 20200216, end: 20200216
  48. POTASSIUM CHLORIDE. [Concomitant]
     Active Substance: POTASSIUM CHLORIDE
     Dosage: 20,OTHER,ONCE
     Route: 042
     Dates: start: 20200215, end: 20200215
  49. METOPROLOL. [Concomitant]
     Active Substance: METOPROLOL
     Dosage: 25,MG,TWICE DAILY
     Route: 048
     Dates: start: 20200221, end: 20200226
  50. METOPROLOL. [Concomitant]
     Active Substance: METOPROLOL
     Dosage: 12.5,MG,TWICE DAILY
     Route: 048
     Dates: start: 20200229
  51. MAGNESIUM SULFATE. [Concomitant]
     Active Substance: MAGNESIUM SULFATE
     Dosage: 4,G,ONCE
     Route: 042
     Dates: start: 20200206, end: 20200206
  52. NYSTATIN. [Concomitant]
     Active Substance: NYSTATIN
     Dosage: 500000,OTHER,THREE TIMES DAILY
     Route: 050
     Dates: start: 20200215, end: 20200215
  53. FLUCONAZOLE. [Concomitant]
     Active Substance: FLUCONAZOLE
     Dosage: 200,MG,DAILY
     Route: 048
     Dates: start: 20200209, end: 20200224
  54. ONDANSETRON [Concomitant]
     Active Substance: ONDANSETRON
     Dosage: 8,MG,ONCE
     Route: 042
     Dates: start: 20200215, end: 20200215
  55. AXICABTAGENE CILOLEUCEL [Suspect]
     Active Substance: AXICABTAGENE CILOLEUCEL
     Indication: DIFFUSE LARGE B-CELL LYMPHOMA
     Dosage: 68 ML, ONCE
     Route: 042
     Dates: start: 20200210, end: 20200210
  56. FAMOTIDINE. [Concomitant]
     Active Substance: FAMOTIDINE
     Dosage: 20,MG,TWICE DAILY
     Route: 048
     Dates: start: 2000
  57. SODIUM CHLORIDE 0.9% [Concomitant]
     Active Substance: SODIUM CHLORIDE
     Dosage: 1000,ML,ONCE
     Route: 042
     Dates: start: 20200204, end: 20200204
  58. LEVETIRACETAM. [Concomitant]
     Active Substance: LEVETIRACETAM
     Dosage: 750,MG,TWICE DAILY
     Route: 042
     Dates: start: 20200215, end: 20200216
  59. NYSTATIN. [Concomitant]
     Active Substance: NYSTATIN
     Dosage: 500000,OTHER,THREE TIMES DAILY
     Route: 050
     Dates: start: 20200218, end: 20200218
  60. DIPHENHYDRAMINE. [Concomitant]
     Active Substance: DIPHENHYDRAMINE
     Dosage: 25,MG,ONCE
     Route: 042
     Dates: start: 20200210, end: 20200210
  61. CEFEPIME [Concomitant]
     Active Substance: CEFEPIME HYDROCHLORIDE
     Dosage: 1,G,THREE TIMES DAILY
     Route: 042
     Dates: start: 20200215, end: 20200219

REACTIONS (4)
  - Confusional state [Not Recovered/Not Resolved]
  - Confusional state [Not Recovered/Not Resolved]
  - Memory impairment [Not Recovered/Not Resolved]
  - Hypothyroidism [Not Recovered/Not Resolved]

NARRATIVE: CASE EVENT DATE: 20200216
